FAERS Safety Report 7576189-2 (Version None)
Quarter: 2011Q2

REPORT INFORMATION
  Report Type: 
  Country: None (occurrence: None)
  Receive Date: 20110623
  Receipt Date: 20110623
  Transmission Date: 20111010
  Serious: Yes (Life-Threatening, Hospitalization)
  Sender: FDA-Public Use
  Company Number: None

PATIENT
  Age: 52 Year
  Sex: Male
  Weight: 99.3377 kg

DRUGS (1)
  1. GAMUNEX [Suspect]
     Indication: MONONEUROPATHY MULTIPLEX
     Dosage: 0.4 MG/KG/DAY DAILY FOR 5 DAYS IV DRIP
     Route: 041
     Dates: start: 20110307, end: 20110309

REACTIONS (1)
  - MENINGITIS ASEPTIC [None]
